FAERS Safety Report 6162580-8 (Version None)
Quarter: 2009Q2

REPORT INFORMATION
  Report Type: 
  Country: None (occurrence: None)
  Receive Date: 20090421
  Receipt Date: 20071112
  Transmission Date: 20091009
  Serious: No
  Sender: FDA-Public Use
  Company Number: US-ASTRAZENECA-2005UW03441

PATIENT
  Age: 72 Year
  Sex: Male
  Weight: 84.8 kg

DRUGS (6)
  1. CRESTOR [Suspect]
     Indication: BLOOD CHOLESTEROL INCREASED
     Route: 048
     Dates: start: 20040101
  2. ZESTRIL [Concomitant]
  3. TOPROL-XL [Concomitant]
  4. FLOMAX [Concomitant]
  5. NEXIUM [Concomitant]
     Route: 048
  6. VITAMINS [Concomitant]

REACTIONS (3)
  - GAIT DISTURBANCE [None]
  - NEUROPATHY PERIPHERAL [None]
  - PAIN IN EXTREMITY [None]
